FAERS Safety Report 12870893 (Version 1)
Quarter: 2016Q4

REPORT INFORMATION
  Report Type: Spontaneous
  Country: US (occurrence: US)
  Receive Date: 20161020
  Receipt Date: 20161020
  Transmission Date: 20170207
  Serious: No
  Sender: FDA-Public Use
  Company Number: None

PATIENT
  Age: 62 Year
  Sex: Female

DRUGS (1)
  1. IBRANCE [Suspect]
     Active Substance: PALBOCICLIB
     Dosage: 1 QD FOR 21 DAY
     Route: 048
     Dates: start: 20160404, end: 20161020

REACTIONS (2)
  - Sinus disorder [None]
  - Ear disorder [None]

NARRATIVE: CASE EVENT DATE: 20161020
